FAERS Safety Report 10312118 (Version 1)
Quarter: 2014Q3

REPORT INFORMATION
  Report Type: Spontaneous
  Country: US (occurrence: US)
  Receive Date: 20140717
  Receipt Date: 20140717
  Transmission Date: 20150326
  Serious: No
  Sender: FDA-Public Use
  Company Number: US-009507513-1407USA005917

PATIENT
  Age: 79 Year
  Sex: Female

DRUGS (1)
  1. METHYLPREDNISOLONE SODIUM SUCCINATE. [Suspect]
     Active Substance: METHYLPREDNISOLONE SODIUM SUCCINATE
     Indication: EPILEPSY
     Dosage: INFUSION OF 1000MG DAILY 3-5 DAYS, THEN WEEKLY FOR 4-6 WEEKS
     Route: 042

REACTIONS (1)
  - Drug ineffective [Unknown]
